FAERS Safety Report 5171614-9 (Version None)
Quarter: 2006Q4

REPORT INFORMATION
  Report Type: 
  Country: None (occurrence: None)
  Receive Date: 20061205
  Receipt Date: 20061120
  Transmission Date: 20070319
  Serious: Yes (Other)
  Sender: FDA-Public Use
  Company Number: 2006143526

PATIENT
  Sex: 0

DRUGS (1)
  1. LYRICA [Suspect]

REACTIONS (4)
  - DRY MOUTH [None]
  - FALL [None]
  - FEELING DRUNK [None]
  - HAEMATOMA [None]
